FAERS Safety Report 5753350-0 (Version None)
Quarter: 2008Q2

REPORT INFORMATION
  Report Type: 
  Country: None (occurrence: None)
  Receive Date: 20080530
  Receipt Date: 20080521
  Transmission Date: 20081010
  Serious: Yes (Other)
  Sender: FDA-Public Use
  Company Number: CN-WYE-H04246708

PATIENT

DRUGS (1)
  1. CORDARONE [Suspect]
     Indication: ARRHYTHMIA
     Dosage: UNKNOWN
     Route: 042

REACTIONS (5)
  - CHEST DISCOMFORT [None]
  - CONFUSIONAL STATE [None]
  - HEAD DISCOMFORT [None]
  - HYPOTENSION [None]
  - PALPITATIONS [None]
